FAERS Safety Report 5264819-X (Version None)
Quarter: 2007Q1

REPORT INFORMATION
  Report Type: 
  Country: None (occurrence: None)
  Receive Date: 20070314
  Receipt Date: 20070309
  Transmission Date: 20070707
  Serious: Yes (Hospitalization)
  Sender: FDA-Public Use
  Company Number: US-GLAXOSMITHKLINE-A0642609A

PATIENT
  Age: 76 Year
  Sex: Female

DRUGS (7)
  1. COREG [Suspect]
     Dosage: 12.5MG TWICE PER DAY
     Route: 048
  2. SYNTHROID [Concomitant]
  3. TORSEMIDE [Concomitant]
  4. SPIRONOLACTONE [Concomitant]
  5. COZAAR [Concomitant]
  6. FOLIC ACID [Concomitant]
  7. GLYCOLAX [Concomitant]

REACTIONS (3)
  - DIVERTICULITIS [None]
  - DRUG INEFFECTIVE [None]
  - WEIGHT INCREASED [None]
